FAERS Safety Report 13045607 (Version 2)
Quarter: 2017Q1

REPORT INFORMATION
  Report Type: Report from Study
  Country: HU (occurrence: HU)
  Receive Date: 20161220
  Receipt Date: 20170105
  Transmission Date: 20170428
  Serious: Yes (Other)
  Sender: FDA-Public Use
  Company Number: HU-BAYER-2016-178336

PATIENT
  Sex: Female
  Weight: 78 kg

DRUGS (4)
  1. STIVARGA [Suspect]
     Active Substance: REGORAFENIB
     Indication: COLORECTAL CANCER METASTATIC
     Dosage: 160 MG, QD
     Route: 048
     Dates: start: 2016, end: 2016
  2. STIVARGA [Suspect]
     Active Substance: REGORAFENIB
     Indication: COLORECTAL CANCER METASTATIC
     Dosage: 120 MG, DAILY
     Route: 048
     Dates: start: 2016
  3. STIVARGA [Suspect]
     Active Substance: REGORAFENIB
     Indication: COLORECTAL CANCER METASTATIC
     Dosage: 160 MG, QD
     Route: 048
     Dates: start: 20160819, end: 2016
  4. STIVARGA [Suspect]
     Active Substance: REGORAFENIB
     Indication: COLORECTAL CANCER METASTATIC
     Dosage: 120 MG, QD (3X40MG)
     Route: 048
     Dates: start: 2016, end: 2016

REACTIONS (9)
  - Oral pain [Recovering/Resolving]
  - Blister [Recovering/Resolving]
  - Decreased appetite [Recovered/Resolved]
  - Skin exfoliation [Recovering/Resolving]
  - Palmar-plantar erythrodysaesthesia syndrome [Recovering/Resolving]
  - Palmar-plantar erythrodysaesthesia syndrome [Recovering/Resolving]
  - Alopecia [Recovering/Resolving]
  - Hypertension [Recovered/Resolved]
  - Pain of skin [Recovering/Resolving]

NARRATIVE: CASE EVENT DATE: 20160826
